FAERS Safety Report 5137960-X (Version None)
Quarter: 2006Q4

REPORT INFORMATION
  Report Type: 
  Country: None (occurrence: None)
  Receive Date: 20061030
  Receipt Date: 20060316
  Transmission Date: 20070319
  Serious: No
  Sender: FDA-Public Use
  Company Number: 2006-03-0453

PATIENT
  Sex: Male

DRUGS (2)
  1. ADVAIR DISKUS 100/50 [Suspect]
     Route: 055
  2. ALBUTEROL [Suspect]
     Route: 055
     Dates: end: 20060105

REACTIONS (3)
  - DYSPNOEA [None]
  - URINE ALCOHOL TEST POSITIVE [None]
  - URINE AMPHETAMINE POSITIVE [None]
